FAERS Safety Report 19454850 (Version 2)
Quarter: 2021Q2

REPORT INFORMATION
  Report Type: Spontaneous
  Country: US (occurrence: US)
  Receive Date: 20210623
  Receipt Date: 20210624
  Transmission Date: 20210717
  Serious: Yes (Other)
  Sender: FDA-Public Use
  Company Number: US-PFIZER INC-2020328086

PATIENT
  Age: 55 Year
  Sex: Male

DRUGS (1)
  1. EUCRISA [Suspect]
     Active Substance: CRISABOROLE
     Dosage: 100 G

REACTIONS (5)
  - Sensitivity to weather change [Unknown]
  - Peripheral swelling [Unknown]
  - Cyst [Unknown]
  - Arthritis [Unknown]
  - Hypoacusis [Unknown]
